FAERS Safety Report 5148938-4 (Version None)
Quarter: 2006Q4

REPORT INFORMATION
  Report Type: 
  Country: None (occurrence: None)
  Receive Date: 20061113
  Receipt Date: 20061102
  Transmission Date: 20070319
  Serious: Yes (Other)
  Sender: FDA-Public Use
  Company Number: PHEH2006US13726

PATIENT
  Sex: Female

DRUGS (1)
  1. ELIDEL [Suspect]
     Indication: ECZEMA
     Dosage: UNK, BID
     Route: 061
     Dates: start: 20040101

REACTIONS (1)
  - THYROID CANCER [None]
